FAERS Safety Report 19752412 (Version 3)
Quarter: 2022Q4

REPORT INFORMATION
  Report Type: Report from Study
  Country: US (occurrence: US)
  Receive Date: 20210826
  Receipt Date: 20221124
  Transmission Date: 20230113
  Serious: Yes (Other)
  Sender: FDA-Public Use
  Company Number: US-TAKEDA-US201934040

PATIENT
  Sex: Male

DRUGS (3)
  1. HUMAN IMMUNOGLOBULIN G [Suspect]
     Active Substance: HUMAN IMMUNOGLOBULIN G
     Indication: Immunodeficiency common variable
     Dosage: UNK
     Route: 042
  2. GAMMAGARD S/D [Suspect]
     Active Substance: HUMAN IMMUNOGLOBULIN G
     Indication: Immunodeficiency common variable
     Dosage: UNK
     Route: 065
  3. GAMMAGARD S/D [Suspect]
     Active Substance: HUMAN IMMUNOGLOBULIN G
     Indication: Immunodeficiency common variable
     Dosage: UNK
     Route: 065

REACTIONS (17)
  - Systemic lupus erythematosus [Not Recovered/Not Resolved]
  - Spinal cord compression [Unknown]
  - Cerebrovascular accident [Unknown]
  - Sepsis [Unknown]
  - Muscle spasticity [Unknown]
  - Gait disturbance [Not Recovered/Not Resolved]
  - Abdominal discomfort [Unknown]
  - Dermatitis [Unknown]
  - Erythema [Unknown]
  - Herpes zoster [Unknown]
  - Lymphadenopathy [Unknown]
  - Headache [Unknown]
  - Muscular weakness [Unknown]
  - Back pain [Unknown]
  - Urinary tract infection [Unknown]
  - COVID-19 [Unknown]
  - Cardiac disorder [Unknown]
